FAERS Safety Report 6346209-1 (Version None)
Quarter: 2009Q3

REPORT INFORMATION
  Report Type: 
  Country: None (occurrence: None)
  Receive Date: 20090821
  Receipt Date: 20090601
  Transmission Date: 20100115
  Serious: No
  Sender: FDA-Public Use
  Company Number: 8047313

PATIENT
  Age: 28 Year
  Sex: Male

DRUGS (4)
  1. CIMZIA [Suspect]
     Dosage: 400 MG SC
     Route: 058
     Dates: start: 20090416
  2. ZYRTEC [Concomitant]
  3. BENADRYL [Concomitant]
  4. ACETAMINOPHEN [Concomitant]

REACTIONS (3)
  - PAIN [None]
  - PARAESTHESIA [None]
  - RESTLESSNESS [None]
